FAERS Safety Report 5680043-0 (Version None)
Quarter: 2008Q1

REPORT INFORMATION
  Report Type: 
  Country: None (occurrence: None)
  Receive Date: 20080325
  Receipt Date: 20080325
  Transmission Date: 20080703
  Serious: Yes (Other)
  Sender: FDA-Public Use
  Company Number: None

PATIENT
  Age: 4 Year
  Sex: Male
  Weight: 17.6903 kg

DRUGS (1)
  1. GRISEOFULVIN [Suspect]
     Indication: TINEA INFECTION
     Dosage: 2 TEASPONFUL IN MORNING FOR 6 WEEKS PO
     Route: 048
     Dates: start: 20080321, end: 20080323

REACTIONS (8)
  - CONFUSIONAL STATE [None]
  - DIARRHOEA [None]
  - DIZZINESS [None]
  - FALL [None]
  - PALLOR [None]
  - PYREXIA [None]
  - UNRESPONSIVE TO STIMULI [None]
  - VOMITING [None]
